FAERS Safety Report 23219650 (Version 6)
Quarter: 2024Q4

REPORT INFORMATION
  Report Type: Spontaneous
  Country: US (occurrence: US)
  Receive Date: 20231122
  Receipt Date: 20241015
  Transmission Date: 20250115
  Serious: No
  Sender: AVADEL CNS PHARMACEUTICALS, LLC
  Company Number: US-AVADEL CNS PHARMACEUTICALS, LLC-2023AVA00319

PATIENT
  Sex: Female
  Weight: 106.12 kg

DRUGS (29)
  1. LUMRYZ [Suspect]
     Active Substance: SODIUM OXYBATE
     Indication: Narcolepsy
     Dosage: 9 G, ONCE NIGHTLY AT BEDTIME ON AN EMPTY STOMACH
     Route: 048
     Dates: start: 202310, end: 2023
  2. LUMRYZ [Suspect]
     Active Substance: SODIUM OXYBATE
     Indication: Cataplexy
     Dosage: 9 G, ONCE NIGHTLY AT BEDTIME ON AN EMPTY STOMACH
     Route: 048
     Dates: start: 2023, end: 202402
  3. LUMRYZ [Suspect]
     Active Substance: SODIUM OXYBATE
     Dosage: 9 G, ONCE NIGHTLY AT BEDTIME ON AN EMPTY STOMACH
     Route: 048
     Dates: start: 202403, end: 20240604
  4. LUMRYZ [Suspect]
     Active Substance: SODIUM OXYBATE
     Dosage: 9 G, ONCE NIGHTLY AT BEDTIME
     Route: 048
     Dates: start: 202406, end: 2024
  5. LUMRYZ [Suspect]
     Active Substance: SODIUM OXYBATE
     Dosage: 9 G, ONCE NIGHTLY AT BEDTIME
     Route: 048
     Dates: start: 2024
  6. MAGNESIUM [Concomitant]
     Active Substance: MAGNESIUM
  7. METHENAMINE MANDELATE [Concomitant]
     Active Substance: METHENAMINE MANDELATE
  8. NARATRIPTAN HYDROCHLORIDE [Concomitant]
     Active Substance: NARATRIPTAN HYDROCHLORIDE
  9. ACETAMINOPHEN\HYDROCODONE [Concomitant]
     Active Substance: ACETAMINOPHEN\HYDROCODONE
  10. CELEBREX [Concomitant]
     Active Substance: CELECOXIB
  11. TIZANIDINE HYDROCHLORIDE [Concomitant]
     Active Substance: TIZANIDINE HYDROCHLORIDE
  12. VITAMINS [Concomitant]
     Active Substance: VITAMINS
  13. DIAZEPAM [Concomitant]
     Active Substance: DIAZEPAM
  14. TRELEGY ELLIPTA [Concomitant]
     Active Substance: FLUTICASONE FUROATE\UMECLIDINIUM BROMIDE\VILANTEROL TRIFENATATE
  15. ALBUTEROL SULFATE [Concomitant]
     Active Substance: ALBUTEROL SULFATE
  16. CALCIUM + VITAMIN D3 ER [Concomitant]
  17. ALEVE [Concomitant]
     Active Substance: NAPROXEN SODIUM
  18. ADDERALL XR [Concomitant]
     Active Substance: AMPHETAMINE ASPARTATE\AMPHETAMINE SULFATE\DEXTROAMPHETAMINE SACCHARATE\DEXTROAMPHETAMINE SULFATE
  19. PRISTIQ EXTENDED-RELEASE [Concomitant]
     Active Substance: DESVENLAFAXINE SUCCINATE
  20. PRISTIQ EXTENDED-RELEASE [Concomitant]
     Active Substance: DESVENLAFAXINE SUCCINATE
  21. BUSPIRONE HCL [Concomitant]
     Active Substance: BUSPIRONE HYDROCHLORIDE
  22. GUANFACINE [Concomitant]
     Active Substance: GUANFACINE
  23. FLUTICASONE PROPIONATE [Concomitant]
     Active Substance: FLUTICASONE PROPIONATE
  24. PANTOPRAZOLE SODIUM [Concomitant]
     Active Substance: PANTOPRAZOLE SODIUM
  25. CARBINOXAMINE MALEATE [Concomitant]
     Active Substance: CARBINOXAMINE MALEATE
  26. SUNOSI [Concomitant]
     Active Substance: SOLRIAMFETOL
  27. PROMETHAZINE HYDROCHLORIDE [Concomitant]
     Active Substance: PROMETHAZINE HYDROCHLORIDE
  28. LORAZEPAM [Concomitant]
     Active Substance: LORAZEPAM
  29. GABAPENTIN [Concomitant]
     Active Substance: GABAPENTIN

REACTIONS (11)
  - Middle insomnia [Not Recovered/Not Resolved]
  - Insomnia [Not Recovered/Not Resolved]
  - Breast disorder [Recovered/Resolved]
  - Procedural pain [Recovered/Resolved]
  - Onychophagia [Recovered/Resolved]
  - Somnolence [Not Recovered/Not Resolved]
  - Unevaluable event [Recovered/Resolved]
  - Therapeutic product effect delayed [Not Recovered/Not Resolved]
  - Product dose omission issue [Recovered/Resolved]
  - Intentional dose omission [Recovered/Resolved]
  - Product administration interrupted [Recovered/Resolved]

NARRATIVE: CASE EVENT DATE: 20230101
